FAERS Safety Report 4688745-X (Version None)
Quarter: 2005Q2

REPORT INFORMATION
  Report Type: 
  Country: None (occurrence: None)
  Receive Date: 20050609
  Receipt Date: 20050609
  Transmission Date: 20051028
  Serious: Yes (Other)
  Sender: FDA-Public Use
  Company Number: None

PATIENT
  Age: 21 Year
  Sex: Male

DRUGS (2)
  1. ABILIFY [Suspect]
     Indication: ANXIETY DISORDER
     Dosage: PO QD
     Route: 048
  2. ADDERALL [Concomitant]

REACTIONS (1)
  - BLOOD GLUCOSE INCREASED [None]
